FAERS Safety Report 9961761 (Version 2)
Quarter: 2014Q1

REPORT INFORMATION
  Report Type: Report from Study
  Country: PR (occurrence: PR)
  Receive Date: 20140305
  Receipt Date: 20140305
  Transmission Date: 20141002
  Serious: Yes (Life-Threatening, Hospitalization)
  Sender: FDA-Public Use
  Company Number: PR-ABBVIE-13P-131-1032230-00

PATIENT
  Sex: Male
  Weight: 68.1 kg

DRUGS (3)
  1. HUMIRA [Suspect]
     Indication: CROHN^S DISEASE
     Route: 058
     Dates: start: 20120502
  2. HUMIRA [Suspect]
     Route: 058
  3. ZANTAC [Concomitant]
     Indication: CROHN^S DISEASE
     Route: 048

REACTIONS (1)
  - Haemoglobin decreased [Recovered/Resolved]
